FAERS Safety Report 5955493-5 (Version None)
Quarter: 2008Q4

REPORT INFORMATION
  Report Type: 
  Country: None (occurrence: None)
  Receive Date: 20081112
  Receipt Date: 20081028
  Transmission Date: 20090506
  Serious: Yes (Death, Hospitalization)
  Sender: FDA-Public Use
  Company Number: 2008BM000199

PATIENT
  Age: 10 Year
  Sex: Male
  Weight: 15 kg

DRUGS (1)
  1. NAGLAZYME [Suspect]
     Indication: MUCOPOLYSACCHARIDOSIS
     Dosage: 15 MG; QW; IVDRP
     Route: 041
     Dates: end: 20081003

REACTIONS (11)
  - ACINETOBACTER INFECTION [None]
  - APNOEA [None]
  - BRADYCARDIA [None]
  - BRONCHIAL DISORDER [None]
  - CONVULSION [None]
  - DISEASE PROGRESSION [None]
  - HYPOTENSION [None]
  - MUCOSAL MEMBRANE HYPERPLASIA [None]
  - PNEUMONIA [None]
  - TRACHEAL DISORDER [None]
  - VIRAL INFECTION [None]
